FAERS Safety Report 6639307-6 (Version None)
Quarter: 2010Q1

REPORT INFORMATION
  Report Type: 
  Country: None (occurrence: None)
  Receive Date: 20100315
  Receipt Date: 20100225
  Transmission Date: 20100710
  Serious: Yes (Death)
  Sender: FDA-Public Use
  Company Number: 2010VX000079

PATIENT
  Age: 47 Year
  Sex: Male

DRUGS (5)
  1. DIASTAT [Suspect]
     Indication: DRUG USE FOR UNKNOWN INDICATION
  2. BACLOFEN [Suspect]
     Indication: DRUG USE FOR UNKNOWN INDICATION
  3. TRIHEXYPHENIDYL HCL [Suspect]
     Indication: DRUG USE FOR UNKNOWN INDICATION
  4. QUETIAPINE [Suspect]
     Indication: DRUG USE FOR UNKNOWN INDICATION
  5. FLUOXETINE [Suspect]
     Indication: DRUG USE FOR UNKNOWN INDICATION

REACTIONS (11)
  - ACIDOSIS [None]
  - BRAIN INJURY [None]
  - COMPLETED SUICIDE [None]
  - CORNEAL REFLEX DECREASED [None]
  - HYPOXIA [None]
  - HYPOXIC ENCEPHALOPATHY [None]
  - MULTIPLE DRUG OVERDOSE INTENTIONAL [None]
  - POISONING [None]
  - PUPILLARY REFLEX IMPAIRED [None]
  - TACHYCARDIA [None]
  - UNRESPONSIVE TO STIMULI [None]
